FAERS Safety Report 7776984-0 (Version None)
Quarter: 2011Q3

REPORT INFORMATION
  Report Type: 
  Country: None (occurrence: None)
  Receive Date: 20110923
  Receipt Date: 20110923
  Transmission Date: 20111222
  Serious: No
  Sender: FDA-Public Use
  Company Number: None

PATIENT
  Sex: Female

DRUGS (1)
  1. ENBREL [Suspect]
     Indication: PSORIASIS
     Dosage: 50MG WEEKLY SQ
     Route: 058
     Dates: start: 20110315, end: 20110425

REACTIONS (3)
  - INFECTION [None]
  - IMMUNODEFICIENCY [None]
  - INFECTION SUSCEPTIBILITY INCREASED [None]
